FAERS Safety Report 8261046-9 (Version None)
Quarter: 2012Q2

REPORT INFORMATION
  Report Type: 
  Country: None (occurrence: None)
  Receive Date: 20120405
  Receipt Date: 20120327
  Transmission Date: 20120825
  Serious: Yes (Other)
  Sender: FDA-Public Use
  Company Number: JP-JNJFOC-20120315161

PATIENT
  Sex: Male
  Weight: 26.31 kg

DRUGS (3)
  1. MAGNESIUM SULFATE [Concomitant]
     Indication: PROPHYLAXIS
     Route: 048
  2. FENTANYL-100 [Suspect]
     Indication: PAIN
     Route: 062
     Dates: start: 20111003, end: 20111011
  3. MOTILIUM [Concomitant]
     Indication: PRODUCT USED FOR UNKNOWN INDICATION
     Dosage: P.R.N.
     Route: 048

REACTIONS (5)
  - PALPITATIONS [None]
  - NAUSEA [None]
  - DYSURIA [None]
  - CARDIAC FAILURE [None]
  - DIZZINESS [None]
